FAERS Safety Report 4319022-4 (Version None)
Quarter: 2004Q1

REPORT INFORMATION
  Report Type: 
  Country: None (occurrence: None)
  Receive Date: 20040315
  Receipt Date: 20040302
  Transmission Date: 20041129
  Serious: Yes (Hospitalization)
  Sender: FDA-Public Use
  Company Number: A004225

PATIENT
  Age: 72 Year
  Sex: Male

DRUGS (1)
  1. DOXAZOSIN MESYLATE [Suspect]
     Indication: BENIGN PROSTATIC HYPERPLASIA
     Dosage: 2 MG (DAILY), ORAL
     Route: 048
     Dates: start: 19990301

REACTIONS (2)
  - CARDIOVASCULAR DISORDER [None]
  - GASTRITIS [None]
